FAERS Safety Report 9003179 (Version 1)
Quarter: 2013Q1

REPORT INFORMATION
  Report Type: Spontaneous
  Country: NL (occurrence: NL)
  Receive Date: 20130108
  Receipt Date: 20130108
  Transmission Date: 20140127
  Serious: Yes (Other)
  Sender: FDA-Public Use
  Company Number: NL-B.I. PHARMACEUTICALS,INC./RIDGEFIELD-2013-BI-00343YA

PATIENT
  Age: 54 Year
  Sex: Male
  Weight: 87 kg

DRUGS (5)
  1. TAMSULOSINA [Suspect]
     Indication: DYSURIA
     Dosage: 0.4 MG
     Route: 065
     Dates: start: 20121201, end: 20121219
  2. EFFEXOR XR [Suspect]
     Route: 065
     Dates: start: 2012
  3. OXAZEPAM [Suspect]
     Route: 065
     Dates: start: 2012
  4. MIRTAZAPINE [Suspect]
     Route: 065
     Dates: start: 2012
  5. ZYPREXA [Suspect]
     Route: 065
     Dates: start: 2012

REACTIONS (1)
  - Depression [Not Recovered/Not Resolved]
